FAERS Safety Report 4298009-4 (Version None)
Quarter: 2004Q1

REPORT INFORMATION
  Report Type: 
  Country: None (occurrence: None)
  Receive Date: 20040218
  Receipt Date: 20011002
  Transmission Date: 20041129
  Serious: Yes (Other)
  Sender: FDA-Public Use
  Company Number: US-BRISTOL-MYERS SQUIBB COMPANY-11042132

PATIENT
  Age: 45 Year
  Sex: Female

DRUGS (12)
  1. STADOL [Suspect]
     Indication: MIGRAINE
     Route: 045
  2. STADOL [Suspect]
  3. IMITREX [Concomitant]
  4. DEPAKOTE [Concomitant]
  5. CALAN [Concomitant]
  6. ZOLOFT [Concomitant]
  7. DESYREL [Concomitant]
  8. SPARINE [Concomitant]
  9. THORAZINE [Concomitant]
  10. METHYLPREDNISOLONE [Concomitant]
  11. LORCET-HD [Concomitant]
  12. PROZAC [Concomitant]

REACTIONS (1)
  - DEPENDENCE [None]
